FAERS Safety Report 20974681 (Version 1)
Quarter: 2022Q2

REPORT INFORMATION
  Report Type: Spontaneous
  Country: US (occurrence: None)
  Receive Date: 20220616
  Receipt Date: 20220616
  Transmission Date: 20220721
  Serious: Yes (Life-Threatening, Hospitalization)
  Sender: FDA-Public Use
  Company Number: None

PATIENT
  Age: 81 Year
  Sex: Female

DRUGS (3)
  1. ISOVUE 370 [Suspect]
     Active Substance: IOPAMIDOL
     Indication: Dyspnoea
     Dosage: OTHER FREQUENCY : ONCE;?
     Route: 042
  2. ISOVUE 370 [Suspect]
     Active Substance: IOPAMIDOL
     Indication: Computerised tomogram thorax
  3. ISOVUE 370 [Suspect]
     Active Substance: IOPAMIDOL
     Indication: Pulmonary embolism

REACTIONS (2)
  - Anaphylactic shock [None]
  - Contrast media reaction [None]

NARRATIVE: CASE EVENT DATE: 20220616
